FAERS Safety Report 4349083-8 (Version None)
Quarter: 2004Q2

REPORT INFORMATION
  Report Type: 
  Country: None (occurrence: None)
  Receive Date: 20040427
  Receipt Date: 20040427
  Transmission Date: 20050107
  Serious: Yes (Hospitalization)
  Sender: FDA-Public Use
  Company Number: None

PATIENT
  Sex: Male
  Weight: 72.5755 kg

DRUGS (1)
  1. BACTRIM [Suspect]
     Indication: ACNE
     Dosage: ONE TABLET TWICE DAIL ORAL
     Route: 048
     Dates: start: 20030914, end: 20031016

REACTIONS (4)
  - DIABETES MELLITUS [None]
  - DRUG HYPERSENSITIVITY [None]
  - HEPATITIS ACUTE [None]
  - RASH GENERALISED [None]
